FAERS Safety Report 15594996 (Version 1)
Quarter: 2018Q4

REPORT INFORMATION
  Report Type: Report from Study
  Country: JP (occurrence: JP)
  Receive Date: 20181106
  Receipt Date: 20181106
  Transmission Date: 20190205
  Serious: Yes (Hospitalization)
  Sender: FDA-Public Use
  Company Number: JP-AMGEN-JPNNI2018155723

PATIENT
  Age: 71 Year
  Sex: Male

DRUGS (9)
  1. DARBEPOETIN ALFA [Suspect]
     Active Substance: DARBEPOETIN ALFA
     Indication: PRODUCT USED FOR UNKNOWN INDICATION
     Dosage: UNK
     Route: 042
     Dates: start: 20161022, end: 20161119
  2. DARBEPOETIN ALFA [Suspect]
     Active Substance: DARBEPOETIN ALFA
     Dosage: UNK
     Route: 042
     Dates: start: 20161126, end: 20170617
  3. DARBEPOETIN ALFA [Suspect]
     Active Substance: DARBEPOETIN ALFA
     Dosage: UNK
     Route: 042
     Dates: start: 20170624, end: 20180125
  4. ROCALTROL [Suspect]
     Active Substance: CALCITRIOL
     Indication: PRODUCT USED FOR UNKNOWN INDICATION
     Dosage: UNK
     Route: 042
     Dates: start: 20170314, end: 20170608
  5. ROCALTROL [Suspect]
     Active Substance: CALCITRIOL
     Dosage: UNK
     Route: 042
     Dates: start: 20170609, end: 20170711
  6. DARBEPOETIN ALFA [Suspect]
     Active Substance: DARBEPOETIN ALFA
     Dosage: UNK
     Route: 042
     Dates: start: 20180308, end: 20180619
  7. REGPARA [Suspect]
     Active Substance: CINACALCET HYDROCHLORIDE
     Indication: PRODUCT USED FOR UNKNOWN INDICATION
     Dosage: UNK
     Route: 048
     Dates: start: 20161004, end: 20171030
  8. ROCALTROL [Suspect]
     Active Substance: CALCITRIOL
     Dosage: UNK
     Route: 042
     Dates: start: 20170715, end: 20170819
  9. REGPARA [Suspect]
     Active Substance: CINACALCET HYDROCHLORIDE
     Dosage: UNK
     Route: 048
     Dates: start: 20171212

REACTIONS (2)
  - Cardiac valve disease [Recovering/Resolving]
  - Angina pectoris [Recovering/Resolving]

NARRATIVE: CASE EVENT DATE: 20180620
